FAERS Safety Report 8388965-7 (Version None)
Quarter: 2012Q2

REPORT INFORMATION
  Report Type: 
  Country: None (occurrence: None)
  Receive Date: 20120528
  Receipt Date: 20120523
  Transmission Date: 20120825
  Serious: Yes (Hospitalization, Other)
  Sender: FDA-Public Use
  Company Number: US-AMGEN-USASP2012032359

PATIENT
  Age: 62 Year
  Sex: Male
  Weight: 79 kg

DRUGS (1)
  1. NPLATE [Suspect]
     Indication: IDIOPATHIC THROMBOCYTOPENIC PURPURA
     Dosage: 4 MUG, QWK

REACTIONS (3)
  - PULMONARY EMBOLISM [None]
  - PLATELET COUNT DECREASED [None]
  - PLATELET COUNT ABNORMAL [None]
